FAERS Safety Report 19037396 (Version 1)
Quarter: 2021Q1

REPORT INFORMATION
  Report Type: Spontaneous
  Country: PL (occurrence: PL)
  Receive Date: 20210322
  Receipt Date: 20210322
  Transmission Date: 20210420
  Serious: Yes (Hospitalization)
  Sender: FDA-Public Use
  Company Number: PL-TOPROL-2021000052

PATIENT
  Age: 67 Year
  Sex: Female

DRUGS (10)
  1. EPLERENONE. [Concomitant]
     Active Substance: EPLERENONE
     Dosage: 25 MG, QD, (0?1?0)
     Route: 065
  2. ASA [Concomitant]
     Active Substance: ASPIRIN
     Dosage: 75 MG, QD, (1?0?0)
     Route: 065
  3. SACUBITRIL VALSARTAN SODIUM HYDRATE [Suspect]
     Active Substance: SACUBITRIL\VALSARTAN
     Dosage: BID, (1?0?1)
     Route: 048
  4. TORASEMIDE [Concomitant]
     Active Substance: TORSEMIDE
     Dosage: QD
     Route: 042
  5. LEVOSIMENDAN [Concomitant]
     Active Substance: LEVOSIMENDAN
     Dosage: 1 DF, Q24H, AMPOULE
     Route: 042
  6. METOPROLOL SUCCINATE. [Suspect]
     Active Substance: METOPROLOL SUCCINATE
     Dosage: (1.5?0?0)
     Route: 065
  7. METOPROLOL SUCCINATE. [Suspect]
     Active Substance: METOPROLOL SUCCINATE
     Dosage: 150 MILLIGRAM, DAILY, (50 MG, TID, (1?1?1))
     Route: 065
  8. RAMIPRIL. [Concomitant]
     Active Substance: RAMIPRIL
     Dosage: 2.5 MG, (1?0?0)
     Route: 065
  9. FUROSEMIDE. [Concomitant]
     Active Substance: FUROSEMIDE
     Dosage: BID, (1?1?0)
     Route: 065
  10. POTASSIUM [Concomitant]
     Active Substance: POTASSIUM
     Dosage: BID (1?1?0)
     Route: 065

REACTIONS (5)
  - Hypotension [Unknown]
  - Dyspnoea [Unknown]
  - Peripheral swelling [Unknown]
  - Supraventricular tachycardia [Unknown]
  - Crepitations [Unknown]
